FAERS Safety Report 8453902 (Version 7)
Quarter: 2013Q1

REPORT INFORMATION
  Report Type: Spontaneous
  Country: US (occurrence: US)
  Receive Date: 20120312
  Receipt Date: 20130308
  Transmission Date: 20140127
  Serious: Yes (Hospitalization, Other)
  Sender: FDA-Public Use
  Company Number: US-009507513-1203USA01071

PATIENT
  Sex: Female

DRUGS (6)
  1. FOSAMAX [Suspect]
     Indication: PROPHYLAXIS
     Route: 048
     Dates: start: 1995, end: 2008
  2. FOSAMAX [Suspect]
     Dosage: 10 MG, UNK
     Route: 048
     Dates: start: 20000105, end: 20010221
  3. FOSAMAX [Suspect]
     Dosage: 70 MG, UNK
     Route: 048
     Dates: start: 20010411, end: 200703
  4. FOSAMAX [Suspect]
     Dosage: 35 MG, UNK
     Route: 048
     Dates: start: 20070718
  5. FOSAMAX [Suspect]
     Indication: PROPHYLAXIS
     Dosage: 70 MG, UNK
     Route: 048
     Dates: start: 20080726, end: 200811
  6. FOSAMAX PLUS D [Suspect]
     Indication: PROPHYLAXIS
     Dosage: 70MG/2800
     Route: 048
     Dates: start: 20070503, end: 200807

REACTIONS (47)
  - Femur fracture [Unknown]
  - Hyperkalaemia [Unknown]
  - Femur fracture [Unknown]
  - Femur fracture [Unknown]
  - Fall [Unknown]
  - Fall [Unknown]
  - Labile hypertension [Unknown]
  - Arthrotomy [Unknown]
  - Open reduction of fracture [Unknown]
  - Open reduction of fracture [Unknown]
  - Intramedullary rod insertion [Unknown]
  - Device failure [Unknown]
  - Tendon sheath lesion excision [Unknown]
  - Skin neoplasm excision [Unknown]
  - Basal cell carcinoma [Unknown]
  - Nausea [Unknown]
  - Vomiting [Unknown]
  - Low turnover osteopathy [Unknown]
  - Impaired healing [Unknown]
  - Hiatus hernia [Unknown]
  - Osteoarthritis [Unknown]
  - Diverticulum intestinal [Unknown]
  - Hernia [Unknown]
  - Weight decreased [Unknown]
  - Urinary retention [Unknown]
  - Cataract operation [Unknown]
  - Atrial fibrillation [Unknown]
  - Decreased appetite [Unknown]
  - Urinary tract infection [Unknown]
  - Atrial fibrillation [Unknown]
  - Leukocytosis [Unknown]
  - Hypokalaemia [Unknown]
  - Dehydration [Unknown]
  - Syncope [Unknown]
  - Bradycardia [Unknown]
  - Carotid arteriosclerosis [Unknown]
  - Tooth extraction [Unknown]
  - Tooth extraction [Unknown]
  - Osteoporosis [Unknown]
  - Bradycardia [Unknown]
  - Osteoarthritis [Unknown]
  - Chronic obstructive pulmonary disease [Unknown]
  - Drug ineffective [Unknown]
  - Dizziness [Unknown]
  - Asthenia [Unknown]
  - Dizziness [Unknown]
  - Gastrooesophageal reflux disease [Unknown]
